FAERS Safety Report 5176415-3 (Version None)
Quarter: 2006Q4

REPORT INFORMATION
  Report Type: 
  Country: None (occurrence: None)
  Receive Date: 20061215
  Receipt Date: 20061025
  Transmission Date: 20070319
  Serious: Yes (Death, Other)
  Sender: FDA-Public Use
  Company Number: US-ELI_LILLY_AND_COMPANY-US200610004736

PATIENT
  Age: 85 Year
  Sex: Male

DRUGS (1)
  1. ZYPREXA [Suspect]
     Route: 042
     Dates: start: 20061020

REACTIONS (4)
  - DYSPNOEA [None]
  - INCORRECT ROUTE OF DRUG ADMINISTRATION [None]
  - MEDICATION ERROR [None]
  - PULMONARY EMBOLISM [None]
